FAERS Safety Report 8343185-7 (Version None)
Quarter: 2012Q2

REPORT INFORMATION
  Report Type: 
  Country: None (occurrence: None)
  Receive Date: 20120508
  Receipt Date: 20120430
  Transmission Date: 20120825
  Serious: Yes (Hospitalization)
  Sender: FDA-Public Use
  Company Number: US-BAYER-2011-099821

PATIENT
  Age: 47 Year
  Sex: Female
  Weight: 89.796 kg

DRUGS (17)
  1. HORMONAL CONTRACEPTIVES FOR SYSTEMIC USE [Concomitant]
     Indication: MENORRHAGIA
  2. YASMIN [Suspect]
     Indication: MENORRHAGIA
     Dosage: UNK
     Dates: start: 20071229, end: 20080801
  3. LEVAQUIN [Concomitant]
     Dosage: UNK
     Dates: start: 20081125, end: 20081215
  4. CELEXA [Concomitant]
     Dosage: 20 MG, QD
  5. ENOXAPARIN [Concomitant]
     Dosage: 90 MG, SC FOR 5 DAYS
  6. FERROUS SULFATE TAB [Concomitant]
     Dosage: 325 MG, BID
  7. LUPRON DEPOT [Concomitant]
  8. LEVOTHYROXINE SODIUM [Concomitant]
     Dosage: 50 MCG/24HR, QD
  9. SYNTHROID [Concomitant]
     Dosage: 50 MCG TAKE 1 TABLET DAILY,
  10. YASMIN [Suspect]
     Indication: UTERINE LEIOMYOMA
  11. DROSPIRENONE AND ETHINYL ESTRADIOL [Suspect]
     Indication: UTERINE LEIOMYOMA
  12. XANAX [Concomitant]
     Indication: ANXIETY
     Dosage: 0.25 MG, TID
  13. DROSPIRENONE AND ETHINYL ESTRADIOL [Suspect]
     Indication: MENORRHAGIA
     Dosage: UNK
     Dates: start: 20080801, end: 20090113
  14. CEFACLOR [Concomitant]
     Dosage: UNK
     Dates: start: 20081113, end: 20081122
  15. AZITHROMYCIN [Concomitant]
     Dosage: UNK
     Dates: start: 20081006, end: 20081011
  16. CONISON [Concomitant]
     Indication: BLOOD IRON ABNORMAL
     Dosage: UNK
     Dates: start: 20080922, end: 20090207
  17. CALCIUM CARBONATE [Concomitant]
     Indication: OSTEOARTHRITIS
     Dosage: UNK
     Dates: start: 20090113

REACTIONS (12)
  - OEDEMA PERIPHERAL [None]
  - GENERAL PHYSICAL HEALTH DETERIORATION [None]
  - DEEP VEIN THROMBOSIS [None]
  - THROMBOSIS [None]
  - ERYTHEMA [None]
  - MENORRHAGIA [None]
  - ANAEMIA [None]
  - PAIN IN EXTREMITY [None]
  - EMOTIONAL DISTRESS [None]
  - VEIN DISORDER [None]
  - ANXIETY [None]
  - PAIN [None]
